FAERS Safety Report 12529194 (Version 1)
Quarter: 2016Q3

REPORT INFORMATION
  Report Type: Spontaneous
  Country: US (occurrence: US)
  Receive Date: 20160705
  Receipt Date: 20160705
  Transmission Date: 20161109
  Serious: Yes (Other)
  Sender: FDA-Public Use
  Company Number: US-BEH-2016070723

PATIENT
  Age: 10 Year
  Sex: Male
  Weight: 32.65 kg

DRUGS (27)
  1. PULMICORT TURBUHALER [Concomitant]
     Active Substance: BUDESONIDE
  2. XYZAL [Concomitant]
     Active Substance: LEVOCETIRIZINE DIHYDROCHLORIDE
  3. SILVADENE [Concomitant]
     Active Substance: SILVER SULFADIAZINE
  4. LEVOCETIRIZINE [Concomitant]
     Active Substance: LEVOCETIRIZINE
  5. LACTULOSE. [Concomitant]
     Active Substance: LACTULOSE
  6. PATANASE [Concomitant]
     Active Substance: OLOPATADINE HYDROCHLORIDE
  7. HYDROXYZINE HCL [Concomitant]
     Active Substance: HYDROXYZINE HYDROCHLORIDE
  8. PREVACID [Concomitant]
     Active Substance: LANSOPRAZOLE
  9. HIZENTRA [Suspect]
     Active Substance: HUMAN IMMUNOGLOBULIN G
     Dosage: 5 UNK, UNK
     Route: 058
     Dates: start: 20151130
  10. DIASTAT ACUDIAL [Concomitant]
     Active Substance: DIAZEPAM
  11. VITAMIN D2 [Concomitant]
     Active Substance: ERGOCALCIFEROL
  12. ZOFRAN [Concomitant]
     Active Substance: ONDANSETRON HYDROCHLORIDE
  13. DOXEPIN [Concomitant]
     Active Substance: DOXEPIN
  14. OMNARIS [Concomitant]
     Active Substance: CICLESONIDE
  15. METADATE [Concomitant]
     Active Substance: METHYLPHENIDATE HYDROCHLORIDE
  16. QVAR [Concomitant]
     Active Substance: BECLOMETHASONE DIPROPIONATE
  17. SINGULAIR [Concomitant]
     Active Substance: MONTELUKAST SODIUM
  18. BACTROBAN [Concomitant]
     Active Substance: MUPIROCIN\MUPIROCIN CALCIUM
  19. XOPENEX [Concomitant]
     Active Substance: LEVALBUTEROL HYDROCHLORIDE
  20. LAMICTAL [Concomitant]
     Active Substance: LAMOTRIGINE
  21. PROTOPIC [Concomitant]
     Active Substance: TACROLIMUS
  22. IBUPROFEN. [Concomitant]
     Active Substance: IBUPROFEN
  23. HIZENTRA [Suspect]
     Active Substance: HUMAN IMMUNOGLOBULIN G
     Indication: IMMUNODEFICIENCY
     Dosage: 5 G, UNK
     Route: 058
     Dates: start: 20151130
  24. VITAMINS WITH MINERALS [Concomitant]
     Active Substance: MINERALS\VITAMINS
  25. RETIN-A [Concomitant]
     Active Substance: TRETINOIN
  26. VITAMIN C [Concomitant]
     Active Substance: ASCORBIC ACID
  27. BACTRIM DS [Concomitant]
     Active Substance: SULFAMETHOXAZOLE\TRIMETHOPRIM

REACTIONS (3)
  - Cough [Unknown]
  - Urticaria [Unknown]
  - Throat tightness [Unknown]

NARRATIVE: CASE EVENT DATE: 20160627
